FAERS Safety Report 8818968 (Version 1)
Quarter: 2012Q4

REPORT INFORMATION
  Report Type: 
  Country: JP (occurrence: JP)
  Receive Date: 20121001
  Receipt Date: 20121001
  Transmission Date: 20130627
  Serious: Yes (Hospitalization)
  Sender: FDA-Public Use
  Company Number: PHHY2012JP083895

PATIENT
  Age: 72 None
  Sex: Female
  Weight: 60 kg

DRUGS (24)
  1. LOCHOL [Suspect]
     Indication: DYSLIPIDAEMIA
     Route: 048
     Dates: start: 20120106, end: 20120202
  2. TOCILIZUMAB [Suspect]
     Indication: RHEUMATOID ARTHRITIS
     Dosage: 440 mg, once every 4 weeks
     Route: 042
     Dates: start: 20090415, end: 20100219
  3. TOCILIZUMAB [Suspect]
     Dosage: 480 mg, once every 4 weeks, ONCE/SINGLE
     Dates: start: 20100319, end: 20100319
  4. TOCILIZUMAB [Suspect]
     Dosage: 440 mg, once every 4 weeks, ONCE/SINGLE
     Dates: start: 20100416, end: 20100416
  5. TOCILIZUMAB [Suspect]
     Dosage: 480 mg, once every 4 weeks, ONCE/SINGLE
     Dates: start: 20100514, end: 20101126
  6. TOCILIZUMAB [Suspect]
     Dosage: 480 mg, once every 4 weeks, ONCE SINGLE
     Dates: start: 20110107
  7. TOCILIZUMAB [Suspect]
     Dosage: 400 mg, once every 4 weeks, ONCE/SINGLE
     Route: 041
     Dates: start: 20120323
  8. HYPEN [Suspect]
     Dosage: 200 mg, BID
     Route: 048
     Dates: start: 20080724, end: 20111201
  9. HYPEN [Suspect]
     Dosage: 200 mg, QD
     Route: 048
     Dates: start: 20111202
  10. LIVALO KOWA [Suspect]
     Indication: DYSLIPIDAEMIA
     Dosage: 1 mg, daily
     Route: 048
     Dates: start: 20070525, end: 20120105
  11. BENET [Suspect]
     Dosage: 17.5 mg, QW
     Route: 048
     Dates: start: 20080724, end: 20111202
  12. BENET [Suspect]
     Dates: end: 20120106
  13. PREDNISOLONE [Concomitant]
     Indication: RHEUMATOID ARTHRITIS
     Dosage: 20 mg, QD
     Route: 048
     Dates: start: 20091007
  14. PREDNISOLONE [Concomitant]
     Dosage: 3 mg, QD
     Route: 048
     Dates: start: 20091016, end: 20101224
  15. PREDNISOLONE [Concomitant]
     Dosage: 2.5 mg, BID
     Route: 048
     Dates: start: 2011
  16. MARZULENE S [Concomitant]
     Dosage: 0.67 g, TID
     Route: 048
     Dates: start: 20071025
  17. TAKEPRON [Concomitant]
     Dosage: 30 mg, QD
     Route: 048
     Dates: start: 20070525
  18. MAGNESIUM OXIDE [Concomitant]
     Dosage: 0.5 g, BID
     Route: 048
     Dates: start: 20090626
  19. ALDACTONE-A [Concomitant]
     Dosage: 25 mg, QD
     Route: 048
     Dates: start: 20100709
  20. MEDROL [Concomitant]
     Indication: RHEUMATOID ARTHRITIS
     Dosage: 6 mg, QD
     Route: 048
  21. MEDROL [Concomitant]
     Dosage: 4 mg, QD
     Route: 048
     Dates: start: 20090607, end: 20091015
  22. METHOTREXATE [Concomitant]
     Dosage: 4 mg, UNK
     Dates: start: 200711, end: 200803
  23. INFLIXIMAB [Concomitant]
     Dates: start: 200711
  24. ETANERCEPT [Concomitant]
     Dates: end: 200904

REACTIONS (7)
  - Cellulitis [Recovered/Resolved]
  - Oropharyngeal pain [Unknown]
  - Swelling face [Unknown]
  - Erythema [Unknown]
  - Submaxillary gland enlargement [Unknown]
  - Pain [Unknown]
  - Asthenia [Unknown]
